FAERS Safety Report 5201803-6 (Version None)
Quarter: 2007Q1

REPORT INFORMATION
  Report Type: 
  Country: None (occurrence: None)
  Receive Date: 20070104
  Receipt Date: 20061220
  Transmission Date: 20070707
  Serious: Yes (Hospitalization)
  Sender: FDA-Public Use
  Company Number: GXKR2006GB08362

PATIENT
  Age: 1 Day
  Sex: Female
  Weight: 3.9 kg

DRUGS (5)
  1. DIAZEPAM [Suspect]
     Indication: DRUG USE FOR UNKNOWN INDICATION
     Dosage: TRANSPLACENTAL
     Route: 064
  2. BUSPIRONE HCL [Suspect]
     Indication: DRUG USE FOR UNKNOWN INDICATION
     Dosage: TRANSPLACENTAL
     Route: 064
  3. IMIPRAMINE [Suspect]
     Indication: DRUG USE FOR UNKNOWN INDICATION
     Dosage: TRANSPLACENTAL
     Route: 064
  4. SEREVENT [Concomitant]
  5. VENTOLIN (SALBUTAMOL SULFATE) [Concomitant]

REACTIONS (8)
  - DRUG EXPOSURE DURING PREGNANCY [None]
  - DYSPHAGIA [None]
  - FEEDING DISORDER NEONATAL [None]
  - FEELING JITTERY [None]
  - HYPOTONIA NEONATAL [None]
  - NEONATAL DISORDER [None]
  - NEONATAL TACHYPNOEA [None]
  - POOR SUCKING REFLEX [None]
